FAERS Safety Report 10968706 (Version 2)
Quarter: 2015Q2

REPORT INFORMATION
  Report Type: Report from Study
  Country: CA (occurrence: CA)
  Receive Date: 20150330
  Receipt Date: 20150413
  Transmission Date: 20150821
  Serious: Yes (Other)
  Sender: FDA-Public Use
  Company Number: CA-ROCHE-1471588

PATIENT
  Age: 27 Year
  Sex: Male

DRUGS (6)
  1. ACTEMRA [Suspect]
     Active Substance: TOCILIZUMAB
     Indication: RHEUMATOID ARTHRITIS
     Route: 058
     Dates: start: 20140926
  2. ACTEMRA [Suspect]
     Active Substance: TOCILIZUMAB
     Dosage: STOPPED IN MID OF DEC/2014
     Route: 058
     Dates: end: 201412
  3. ARAVA [Concomitant]
     Active Substance: LEFLUNOMIDE
  4. OMNARIS [Concomitant]
     Active Substance: CICLESONIDE
  5. ACTEMRA [Suspect]
     Active Substance: TOCILIZUMAB
     Dosage: FREQUENCY: EVERY OTHER WEEK, TEMPORARILY DISCONTINUED, LAST DOSE WAS TAKEN ON 17/OCT/2014
     Route: 058
     Dates: end: 20141017
  6. IBUPROFEN. [Concomitant]
     Active Substance: IBUPROFEN

REACTIONS (7)
  - Hyperlipidaemia [Unknown]
  - Joint swelling [Unknown]
  - Pain in jaw [Not Recovered/Not Resolved]
  - Injection site cyst [Unknown]
  - Hepatic enzyme abnormal [Unknown]
  - Headache [Recovered/Resolved]
  - Sinusitis [Recovered/Resolved]

NARRATIVE: CASE EVENT DATE: 201410
